FAERS Safety Report 15452481 (Version 1)
Quarter: 2018Q4

REPORT INFORMATION
  Report Type: Report from Study
  Country: US (occurrence: US)
  Receive Date: 20181001
  Receipt Date: 20181001
  Transmission Date: 20190204
  Serious: Yes (Other)
  Sender: FDA-Public Use
  Company Number: US-JAZZ-2018-US-011162

PATIENT
  Sex: Female

DRUGS (28)
  1. DIPHENHYDRAMINE HYDROCHLORIDE. [Concomitant]
     Active Substance: DIPHENHYDRAMINE HYDROCHLORIDE
  2. KLONOPIN [Concomitant]
     Active Substance: CLONAZEPAM
  3. VITAMIN B12 [Concomitant]
     Active Substance: CYANOCOBALAMIN
  4. XYREM [Suspect]
     Active Substance: SODIUM OXYBATE
     Dosage: DOSE ADJUSTMENTS
     Route: 048
     Dates: start: 201310, end: 201807
  5. CORTISONE ACETATE. [Concomitant]
     Active Substance: CORTISONE ACETATE
  6. DIAZEPAM. [Concomitant]
     Active Substance: DIAZEPAM
  7. HYDROCODONE BITARTRATE. [Concomitant]
     Active Substance: HYDROCODONE BITARTRATE
  8. XANAX [Concomitant]
     Active Substance: ALPRAZOLAM
  9. XYREM [Suspect]
     Active Substance: SODIUM OXYBATE
     Dosage: 3 G, BID
     Route: 048
     Dates: start: 201807, end: 201807
  10. VALIUM [Concomitant]
     Active Substance: DIAZEPAM
  11. XYREM [Suspect]
     Active Substance: SODIUM OXYBATE
     Dosage: 3.5 G, BID
     Route: 048
     Dates: start: 201807
  12. ZYRTEC [Concomitant]
     Active Substance: CETIRIZINE HYDROCHLORIDE
  13. CHERATUSSIN [Concomitant]
     Active Substance: AMMONIUM CHLORIDE\DEXTROMETHORPHAN\SODIUM CITRATE
  14. MELATONIN [Concomitant]
     Active Substance: MELATONIN
  15. XOPENEX HFA [Concomitant]
     Active Substance: LEVALBUTEROL TARTRATE
  16. XYREM [Suspect]
     Active Substance: SODIUM OXYBATE
     Indication: NARCOLEPSY
     Dosage: UNK
     Route: 048
     Dates: start: 2009
  17. ALBUTEROL SULFATE. [Concomitant]
     Active Substance: ALBUTEROL SULFATE
  18. TRAZODONE [Concomitant]
     Active Substance: TRAZODONE HYDROCHLORIDE
  19. LIDOCAINE HCL [Concomitant]
     Active Substance: LIDOCAINE HYDROCHLORIDE
  20. CYCLOBENZAPRINE. [Concomitant]
     Active Substance: CYCLOBENZAPRINE
  21. XYREM [Suspect]
     Active Substance: SODIUM OXYBATE
     Indication: CATAPLEXY
     Dosage: 3 G, BID
     Route: 048
     Dates: start: 201303, end: 201310
  22. GABAPENTIN. [Concomitant]
     Active Substance: GABAPENTIN
  23. TRAMADOL. [Concomitant]
     Active Substance: TRAMADOL
  24. ALEVE [Concomitant]
     Active Substance: NAPROXEN SODIUM
  25. SINGULAIR [Concomitant]
     Active Substance: MONTELUKAST SODIUM
  26. ADDERALL [Concomitant]
     Active Substance: AMPHETAMINE ASPARTATE\AMPHETAMINE SULFATE\DEXTROAMPHETAMINE SACCHARATE\DEXTROAMPHETAMINE SULFATE
  27. FLOVENT HFA [Concomitant]
     Active Substance: FLUTICASONE PROPIONATE
  28. IBUPROFEN. [Concomitant]
     Active Substance: IBUPROFEN

REACTIONS (4)
  - Drug ineffective [Not Recovered/Not Resolved]
  - Sleep apnoea syndrome [Unknown]
  - Treatment noncompliance [Unknown]
  - Exposure during pregnancy [Unknown]

NARRATIVE: CASE EVENT DATE: 2011
